FAERS Safety Report 14406548 (Version 4)
Quarter: 2018Q2

REPORT INFORMATION
  Report Type: Report from Study
  Country: US (occurrence: US)
  Receive Date: 20180118
  Receipt Date: 20180615
  Transmission Date: 20180711
  Serious: Yes (Other)
  Sender: FDA-Public Use
  Company Number: PHEH2018US001531

PATIENT
  Age: 51 Year
  Sex: Female

DRUGS (2)
  1. GILENYA [Suspect]
     Active Substance: FINGOLIMOD HYDROCHLORIDE
     Indication: MULTIPLE SCLEROSIS
     Dosage: 0.5 MG, QD
     Route: 048
     Dates: start: 201710
  2. GILENYA [Suspect]
     Active Substance: FINGOLIMOD HYDROCHLORIDE
     Dosage: 0.5 MG, QD
     Route: 048
     Dates: start: 20180316

REACTIONS (14)
  - Malaise [Unknown]
  - Asthenia [Not Recovered/Not Resolved]
  - Urinary tract infection [Recovering/Resolving]
  - Diverticulitis [Recovering/Resolving]
  - Ear infection [Recovering/Resolving]
  - Fall [Unknown]
  - Hepatic enzyme increased [Not Recovered/Not Resolved]
  - Dysphagia [Recovering/Resolving]
  - Fatigue [Recovering/Resolving]
  - Back pain [Recovering/Resolving]
  - Multiple sclerosis relapse [Recovering/Resolving]
  - Nausea [Not Recovered/Not Resolved]
  - Vomiting [Unknown]
  - Insomnia [Not Recovered/Not Resolved]

NARRATIVE: CASE EVENT DATE: 20171227
